FAERS Safety Report 8777799 (Version 1)
Quarter: 2012Q4

REPORT INFORMATION
  Report Type: 
  Country: PL (occurrence: PL)
  Receive Date: 20120912
  Receipt Date: 20120912
  Transmission Date: 20130627
  Serious: Yes (Other)
  Sender: FDA-Public Use
  Company Number: PHHY2012PL079019

PATIENT
  Sex: Female

DRUGS (2)
  1. PAMIDRONATE [Suspect]
     Dosage: 90 mg, every month
     Route: 042
  2. DOCETAXEL [Concomitant]

REACTIONS (2)
  - Osteonecrosis of jaw [Recovering/Resolving]
  - Toothache [Recovered/Resolved]
